FAERS Safety Report 6320549-4 (Version None)
Quarter: 2009Q3

REPORT INFORMATION
  Report Type: 
  Country: None (occurrence: None)
  Receive Date: 20090822
  Receipt Date: 20081112
  Transmission Date: 20100115
  Serious: No
  Sender: FDA-Public Use
  Company Number: US-ABBOTT-08P-163-0487517-00

PATIENT
  Sex: Male

DRUGS (5)
  1. NIASPAN [Suspect]
     Indication: DRUG USE FOR UNKNOWN INDICATION
     Route: 048
     Dates: start: 20080829, end: 20081001
  2. NIASPAN [Suspect]
     Route: 048
     Dates: start: 20081001
  3. LOPINAVIR [Concomitant]
     Indication: HIV INFECTION
     Dates: start: 20030101
  4. FOSAMPRENAVIR [Concomitant]
     Indication: HIV INFECTION
     Dates: start: 20030101
  5. TRUVADA [Concomitant]
     Indication: HIV INFECTION
     Dates: start: 20030101

REACTIONS (2)
  - FLUSHING [None]
  - RASH [None]
